FAERS Safety Report 18717175 (Version 1)
Quarter: 2021Q1

REPORT INFORMATION
  Report Type: Spontaneous
  Country: CN (occurrence: CN)
  Receive Date: 20210108
  Receipt Date: 20210108
  Transmission Date: 20210419
  Serious: Yes (Hospitalization)
  Sender: FDA-Public Use
  Company Number: CN-ASTRAZENECA-2021A001848

PATIENT
  Age: 16 Year
  Sex: Female
  Weight: 49 kg

DRUGS (15)
  1. ZOLOFT [Suspect]
     Active Substance: SERTRALINE HYDROCHLORIDE
     Indication: BEHAVIOUR DISORDER
     Route: 048
     Dates: start: 20201207, end: 20201210
  2. SEROQUEL [Suspect]
     Active Substance: QUETIAPINE FUMARATE
     Indication: EMOTIONAL DISORDER OF CHILDHOOD
     Route: 048
     Dates: start: 20201223, end: 20201224
  3. ZOLOFT [Suspect]
     Active Substance: SERTRALINE HYDROCHLORIDE
     Indication: EMOTIONAL DISORDER OF CHILDHOOD
     Route: 048
     Dates: start: 20201204, end: 20201207
  4. ZOLOFT [Suspect]
     Active Substance: SERTRALINE HYDROCHLORIDE
     Indication: BEHAVIOUR DISORDER
     Route: 048
     Dates: start: 20201225
  5. SEROQUEL [Suspect]
     Active Substance: QUETIAPINE FUMARATE
     Indication: EMOTIONAL DISORDER OF CHILDHOOD
     Route: 048
     Dates: start: 20201221, end: 20201223
  6. ZOLOFT [Suspect]
     Active Substance: SERTRALINE HYDROCHLORIDE
     Indication: BEHAVIOUR DISORDER
     Route: 048
     Dates: start: 20201203, end: 20201204
  7. ZOLOFT [Suspect]
     Active Substance: SERTRALINE HYDROCHLORIDE
     Indication: BEHAVIOUR DISORDER
     Route: 048
     Dates: start: 20201204, end: 20201207
  8. ZOLOFT [Suspect]
     Active Substance: SERTRALINE HYDROCHLORIDE
     Indication: EMOTIONAL DISORDER OF CHILDHOOD
     Route: 048
     Dates: start: 20201225
  9. ZOLOFT [Suspect]
     Active Substance: SERTRALINE HYDROCHLORIDE
     Indication: EMOTIONAL DISORDER OF CHILDHOOD
     Route: 048
     Dates: start: 20201207, end: 20201210
  10. LAEVOLAC [Concomitant]
     Active Substance: LACTULOSE
     Indication: CONSTIPATION
     Route: 048
     Dates: start: 20201207, end: 20201231
  11. SEROQUEL [Suspect]
     Active Substance: QUETIAPINE FUMARATE
     Indication: BEHAVIOUR DISORDER
     Route: 048
     Dates: start: 20201221, end: 20201223
  12. ZOLOFT [Suspect]
     Active Substance: SERTRALINE HYDROCHLORIDE
     Indication: EMOTIONAL DISORDER OF CHILDHOOD
     Route: 048
     Dates: start: 20201210, end: 20201224
  13. ZOLOFT [Suspect]
     Active Substance: SERTRALINE HYDROCHLORIDE
     Indication: EMOTIONAL DISORDER OF CHILDHOOD
     Route: 048
     Dates: start: 20201203, end: 20201204
  14. ZOLOFT [Suspect]
     Active Substance: SERTRALINE HYDROCHLORIDE
     Indication: BEHAVIOUR DISORDER
     Route: 048
     Dates: start: 20201210, end: 20201224
  15. SEROQUEL [Suspect]
     Active Substance: QUETIAPINE FUMARATE
     Indication: BEHAVIOUR DISORDER
     Route: 048
     Dates: start: 20201223, end: 20201224

REACTIONS (9)
  - Irritability [Unknown]
  - Discomfort [Not Recovered/Not Resolved]
  - Negative thoughts [Unknown]
  - Nausea [Recovering/Resolving]
  - Condition aggravated [Unknown]
  - Hypophagia [Unknown]
  - Gastrointestinal disorder [Recovering/Resolving]
  - Vomiting [Recovering/Resolving]
  - Anxiety [Unknown]

NARRATIVE: CASE EVENT DATE: 20201222
